FAERS Safety Report 9411469 (Version 1)
Quarter: 2013Q3

REPORT INFORMATION
  Report Type: Spontaneous
  Country: AU (occurrence: AU)
  Receive Date: 20130722
  Receipt Date: 20130722
  Transmission Date: 20140515
  Serious: Yes (Death)
  Sender: FDA-Public Use
  Company Number: AU-ROCHE-1250840

PATIENT
  Age: 70 Year
  Sex: Male

DRUGS (6)
  1. RIBAVIRIN [Suspect]
     Indication: LIVER DISORDER
     Dosage: DOSE UNSPEC
     Route: 048
  2. RIBAVIRIN [Suspect]
     Indication: HEPATITIS C
  3. PEGINTERFERON ALFA-2B [Suspect]
     Indication: LIVER DISORDER
     Dosage: DOSE UNSPEC
     Route: 065
  4. PEGINTERFERON ALFA-2B [Suspect]
     Indication: HEPATITIS C
  5. VICTRELIS [Suspect]
     Indication: LIVER DISORDER
     Dosage: DOSE UNSPEC
     Route: 048
  6. VICTRELIS [Suspect]
     Indication: HEPATITIS C

REACTIONS (1)
  - Respiratory disorder [Fatal]
